FAERS Safety Report 10953698 (Version 1)
Quarter: 2015Q1

REPORT INFORMATION
  Report Type: Spontaneous
  Country: US (occurrence: US)
  Receive Date: 20150325
  Receipt Date: 20150325
  Transmission Date: 20150721
  Serious: Yes (Death)
  Sender: FDA-Public Use
  Company Number: US-CIPLA LTD.-2015US02410

PATIENT

DRUGS (10)
  1. ACETAMINOPHEN. [Suspect]
     Active Substance: ACETAMINOPHEN
  2. DOXYLAMINE [Suspect]
     Active Substance: DOXYLAMINE
  3. METHADONE [Suspect]
     Active Substance: METHADONE HYDROCHLORIDE
  4. HYDROCODONE [Suspect]
     Active Substance: HYDROCODONE
  5. DIPHENHYDRAMINE [Suspect]
     Active Substance: DIPHENHYDRAMINE
  6. QUININE [Suspect]
     Active Substance: QUININE
  7. COCAINE [Suspect]
     Active Substance: COCAINE
  8. OXYCODONE [Suspect]
     Active Substance: OXYCODONE
  9. CITALOPRAM [Suspect]
     Active Substance: CITALOPRAM HYDROBROMIDE
  10. HEROIN [Suspect]
     Active Substance: DIACETYLMORPHINE

REACTIONS (1)
  - Drug abuse [Fatal]
